FAERS Safety Report 5824538-5 (Version None)
Quarter: 2008Q3

REPORT INFORMATION
  Report Type: 
  Country: None (occurrence: None)
  Receive Date: 20080728
  Receipt Date: 20080716
  Transmission Date: 20090109
  Serious: Yes (Other)
  Sender: FDA-Public Use
  Company Number: AU-ROCHE-575945

PATIENT
  Sex: Male

DRUGS (2)
  1. PEGASYS [Suspect]
     Indication: HEPATITIS B
     Route: 065
  2. PEGASYS [Suspect]
     Route: 065

REACTIONS (1)
  - NON-HODGKIN'S LYMPHOMA [None]
